FAERS Safety Report 8572078-5 (Version None)
Quarter: 2012Q3

REPORT INFORMATION
  Report Type: 
  Country: None (occurrence: None)
  Receive Date: 20120806
  Receipt Date: 20120727
  Transmission Date: 20120928
  Serious: Yes (Other)
  Sender: FDA-Public Use
  Company Number: US-BAYER-2012-077162

PATIENT
  Age: 35 Year
  Sex: Female

DRUGS (6)
  1. YAZ [Suspect]
  2. YASMIN [Suspect]
  3. DROSPIRENONE AND ETHINYL ESTRADIOL [Suspect]
  4. BENADRYL [Concomitant]
     Indication: VOMITING
     Dosage: 50 MG, UNK
  5. MULTI-VITAMINS [Concomitant]
  6. COMPAZINE [Concomitant]
     Indication: VOMITING
     Dosage: 10 MG, UNK

REACTIONS (1)
  - HAEMORRHAGE INTRACRANIAL [None]
